FAERS Safety Report 5830086-9 (Version None)
Quarter: 2008Q3

REPORT INFORMATION
  Report Type: 
  Country: None (occurrence: None)
  Receive Date: 20080801
  Receipt Date: 20080730
  Transmission Date: 20090109
  Serious: Yes (Hospitalization, Other)
  Sender: FDA-Public Use
  Company Number: NL-BRISTOL-MYERS SQUIBB COMPANY-13397476

PATIENT
  Age: 67 Year
  Sex: Male
  Weight: 74 kg

DRUGS (2)
  1. CISPLATIN [Suspect]
     Indication: TRANSITIONAL CELL CARCINOMA
     Dosage: 05FEB04-130MG 26FEB04-130MG 24MAR04-130MG 22APR04-100MG 19MAY04-135MG 24JUN04-130MG
     Dates: start: 20040624, end: 20040624
  2. GEMCITABINE [Suspect]
     Indication: TRANSITIONAL CELL CARCINOMA
     Dates: start: 20040630, end: 20040630

REACTIONS (1)
  - THROMBOCYTOPENIA [None]
